FAERS Safety Report 8267559-8 (Version None)
Quarter: 2012Q2

REPORT INFORMATION
  Report Type: 
  Country: None (occurrence: None)
  Receive Date: 20120409
  Receipt Date: 20120330
  Transmission Date: 20120825
  Serious: Yes (Hospitalization, Other)
  Sender: FDA-Public Use
  Company Number: US-BAYER-2011-111129

PATIENT
  Age: 21 Year
  Sex: Female
  Weight: 102.49 kg

DRUGS (5)
  1. NEXIUM [Concomitant]
     Dosage: 40 MG, UNK
     Route: 048
     Dates: start: 20091221
  2. DROSPIRENONE AND ETHINYL ESTRADIOL [Suspect]
  3. ABILIFY [Concomitant]
     Dosage: UNK
     Dates: start: 20090301
  4. SEROQUEL [Concomitant]
     Indication: IRRITABILITY
     Dosage: 50 MG, HS
     Route: 048
     Dates: start: 20090301
  5. TOPAMAX [Concomitant]
     Dosage: 25 MG, BID
     Route: 048

REACTIONS (14)
  - NAUSEA [None]
  - SCAR [None]
  - CONSTIPATION [None]
  - CHOLECYSTECTOMY [None]
  - PAIN [None]
  - ABDOMINAL DISTENSION [None]
  - ANXIETY [None]
  - VOMITING [None]
  - DIARRHOEA [None]
  - BILIARY DYSKINESIA [None]
  - EMOTIONAL DISTRESS [None]
  - FLATULENCE [None]
  - DYSPEPSIA [None]
  - DEPRESSION [None]
